FAERS Safety Report 13334478 (Version 1)
Quarter: 2017Q1

REPORT INFORMATION
  Report Type: Spontaneous
  Country: DK (occurrence: DK)
  Receive Date: 20170314
  Receipt Date: 20170314
  Transmission Date: 20170428
  Serious: Yes (Other)
  Sender: FDA-Public Use
  Company Number: DK-JNJFOC-20170312455

PATIENT
  Age: 60 Year
  Sex: Male

DRUGS (2)
  1. XARELTO [Suspect]
     Active Substance: RIVAROXABAN
     Indication: ANTICOAGULANT THERAPY
     Route: 048
  2. XARELTO [Suspect]
     Active Substance: RIVAROXABAN
     Indication: ANTICOAGULANT THERAPY
     Route: 048
     Dates: start: 20150604, end: 20150707

REACTIONS (10)
  - Haematoma [Unknown]
  - Sleep disorder [Unknown]
  - Skin discolouration [Unknown]
  - Abasia [Unknown]
  - Pain in extremity [Unknown]
  - Erythema [Unknown]
  - Contusion [Unknown]
  - Peripheral swelling [Unknown]
  - Ischaemic neuropathy [Unknown]
  - Sensory disturbance [Unknown]

NARRATIVE: CASE EVENT DATE: 201506
